FAERS Safety Report 17089258 (Version 1)
Quarter: 2019Q4

REPORT INFORMATION
  Report Type: Spontaneous
  Country: US (occurrence: US)
  Receive Date: 20191128
  Receipt Date: 20191128
  Transmission Date: 20200122
  Serious: Yes (Hospitalization, Other)
  Sender: FDA-Public Use
  Company Number: US-TEVA-2019-US-1141983

PATIENT
  Sex: Female

DRUGS (5)
  1. BUSPIRONE [Concomitant]
     Active Substance: BUSPIRONE HYDROCHLORIDE
  2. CLONAZEPAM TEVA [Suspect]
     Active Substance: CLONAZEPAM
     Indication: DEPRESSION
  3. CELEXA TORRENT [Concomitant]
  4. CLONAZEPAM TEVA [Suspect]
     Active Substance: CLONAZEPAM
     Indication: PANIC DISORDER
  5. CLONAZEPAM TEVA [Suspect]
     Active Substance: CLONAZEPAM
     Indication: ANXIETY

REACTIONS (7)
  - Nervousness [Unknown]
  - Product substitution issue [Unknown]
  - Asthenia [Unknown]
  - Vomiting [Unknown]
  - Malaise [Unknown]
  - Swollen tongue [Unknown]
  - Burn oral cavity [Unknown]
